FAERS Safety Report 5107731-9 (Version None)
Quarter: 2006Q3

REPORT INFORMATION
  Report Type: 
  Country: None (occurrence: None)
  Receive Date: 20060914
  Receipt Date: 20060901
  Transmission Date: 20061208
  Serious: Yes (Hospitalization)
  Sender: FDA-Public Use
  Company Number: 2006083071

PATIENT
  Age: 56 Year
  Sex: Male
  Weight: 79 kg

DRUGS (7)
  1. SOLU-MEDROL [Suspect]
     Indication: SCIATICA
     Dosage: 80 MG (40 MG,), INTRAMUSCULAR
     Route: 030
     Dates: start: 20060701, end: 20060703
  2. PIROXICAM BETADEX (PIROXICAM BETADEX) [Concomitant]
  3. TETRAZEPAM (TETRAZEPAM) [Concomitant]
  4. DEXTROPROPOXYPHENE HYDROCHLORIDE (DEXTROPROPOXYPHENE) [Concomitant]
  5. MORPHINE SULFATE [Concomitant]
  6. METOCLOPRAMIDE [Concomitant]
  7. PROPRANOLOL HYDROCHLORIDE [Concomitant]

REACTIONS (2)
  - HIATUS HERNIA [None]
  - HICCUPS [None]
